FAERS Safety Report 20004331 (Version 8)
Quarter: 2022Q1

REPORT INFORMATION
  Report Type: Spontaneous
  Country: US (occurrence: US)
  Receive Date: 20211027
  Receipt Date: 20220324
  Transmission Date: 20220423
  Serious: Yes (Life-Threatening, Hospitalization, Disabling, Other)
  Sender: FDA-Public Use
  Company Number: US-SANOFI-00822397

PATIENT
  Age: 68 Year
  Sex: Male

DRUGS (3)
  1. OXALIPLATIN [Suspect]
     Active Substance: OXALIPLATIN
     Indication: Adenocarcinoma of colon
     Dosage: UNK
     Dates: start: 201107, end: 201110
  2. CANNABIS SATIVA SUBSP. INDICA TOP [Concomitant]
     Active Substance: CANNABIS SATIVA SUBSP. INDICA TOP
  3. SENNA LAXATIVE [Concomitant]
     Active Substance: SENNOSIDES

REACTIONS (37)
  - Suicidal ideation [Unknown]
  - Neuropathy peripheral [Not Recovered/Not Resolved]
  - Neuralgia [Not Recovered/Not Resolved]
  - Large intestine perforation [Unknown]
  - Splenic rupture [Unknown]
  - Dysstasia [Not Recovered/Not Resolved]
  - Hypersensitivity [Not Recovered/Not Resolved]
  - Large intestinal obstruction [Recovered/Resolved]
  - Vomiting [Not Recovered/Not Resolved]
  - Sepsis [Not Recovered/Not Resolved]
  - Colon injury [Not Recovered/Not Resolved]
  - Drug ineffective [Unknown]
  - Pain in extremity [Unknown]
  - Tic [Not Recovered/Not Resolved]
  - Chronic obstructive pulmonary disease [Not Recovered/Not Resolved]
  - Cognitive disorder [Not Recovered/Not Resolved]
  - Speech disorder [Unknown]
  - Feeling abnormal [Not Recovered/Not Resolved]
  - Feeling abnormal [Not Recovered/Not Resolved]
  - Road traffic accident [Not Recovered/Not Resolved]
  - Back injury [Not Recovered/Not Resolved]
  - Discomfort [Unknown]
  - Weight decreased [Unknown]
  - Pain [Unknown]
  - Constipation [Unknown]
  - Depression [Unknown]
  - Anxiety [Not Recovered/Not Resolved]
  - Dyspnoea [Unknown]
  - Tremor [Not Recovered/Not Resolved]
  - Gait disturbance [Unknown]
  - Skin burning sensation [Unknown]
  - Burning sensation [Unknown]
  - Ill-defined disorder [Unknown]
  - Hypoaesthesia [Unknown]
  - Paraesthesia [Unknown]
  - Fall [Not Recovered/Not Resolved]
  - Stomatitis [Recovered/Resolved]

NARRATIVE: CASE EVENT DATE: 20170101
